FAERS Safety Report 5128243-2 (Version None)
Quarter: 2006Q4

REPORT INFORMATION
  Report Type: 
  Country: None (occurrence: None)
  Receive Date: 20061011
  Receipt Date: 20060926
  Transmission Date: 20070319
  Serious: Yes (Other)
  Sender: FDA-Public Use
  Company Number: A-CH2006-13144

PATIENT
  Sex: Female

DRUGS (1)
  1. TRACLEER [Suspect]
     Indication: SYSTEMIC SCLEROSIS
     Dosage: ORAL
     Route: 048
     Dates: start: 20050601

REACTIONS (4)
  - ADVERSE DRUG REACTION [None]
  - AUTOIMMUNE DISORDER [None]
  - OFF LABEL USE [None]
  - PERIPHERAL T-CELL LYMPHOMA UNSPECIFIED [None]
